FAERS Safety Report 25094093 (Version 1)
Quarter: 2025Q1

REPORT INFORMATION
  Report Type: Spontaneous
  Country: US (occurrence: None)
  Receive Date: 20250318
  Receipt Date: 20250318
  Transmission Date: 20250409
  Serious: Yes (Hospitalization)
  Sender: FDA-CTU
  Company Number: None

PATIENT
  Sex: Male

DRUGS (1)
  1. LORBRENA [Suspect]
     Active Substance: LORLATINIB
     Indication: Adrenal gland cancer
     Dosage: FREQUENCY : DAILY;?
     Route: 048
     Dates: start: 202502

REACTIONS (5)
  - Oxygen saturation decreased [None]
  - Mood altered [None]
  - Nausea [None]
  - Vomiting [None]
  - Pyrexia [None]
